FAERS Safety Report 7221990-8 (Version None)
Quarter: 2011Q1

REPORT INFORMATION
  Report Type: 
  Country: None (occurrence: None)
  Receive Date: 20110112
  Receipt Date: 20101228
  Transmission Date: 20110831
  Serious: No
  Sender: FDA-Public Use
  Company Number: US-B.I. PHARMACEUTICALS,INC./RIDGEFIELD-2011-BP-00141BP

PATIENT
  Sex: Female

DRUGS (22)
  1. ALLOPURINOL [Concomitant]
     Indication: NEPHROLITHIASIS
     Dosage: 200 MG
     Route: 048
  2. NEXIUM [Concomitant]
     Indication: REFLUX GASTRITIS
     Dosage: 40 MG
     Route: 048
  3. MULTI-VITAMIN [Concomitant]
     Indication: ROUTINE HEALTH MAINTENANCE
     Dosage: 1 DAILY
     Route: 048
  4. FUROSEMIDE [Concomitant]
     Indication: FLUID RETENTION
     Dosage: 20 MG
     Route: 048
  5. TRICOR [Concomitant]
     Indication: BLOOD CHOLESTEROL INCREASED
     Dosage: 145 MG
     Route: 048
  6. CEPHALEXIN [Concomitant]
     Indication: NEPHROLITHIASIS
     Dosage: 250 MG
     Route: 048
  7. NITROGLYCERIN [Concomitant]
     Indication: CHEST PAIN
     Dosage: 1 TAB AS NEEDED
  8. ZOLPIDEM [Concomitant]
     Indication: SLEEP DISORDER
     Dosage: 1 TAB AS NEEDED.
     Route: 048
  9. FLUOXETINE [Concomitant]
     Indication: ANXIETY
     Dosage: 10 MG
     Route: 048
  10. AMIODARONE [Concomitant]
     Indication: CARDIAC DISORDER
     Dosage: 200 MG
     Route: 048
  11. TRIMETHOPRIM [Concomitant]
     Indication: NEPHROLITHIASIS
     Dosage: 100 MG
     Route: 048
  12. TRAMADOL [Concomitant]
     Indication: ARTHRITIS
     Dosage: 1 TAB AS NEEDED
     Route: 048
  13. LEVOTHYROXINE [Concomitant]
     Indication: THYROID DISORDER
     Dosage: 88 MG
     Route: 048
  14. VITAMIN E [Concomitant]
     Indication: ROUTINE HEALTH MAINTENANCE
     Dosage: 400 U
     Route: 048
  15. KLOR-CON [Concomitant]
     Indication: MINERAL SUPPLEMENTATION
     Dosage: 1 DAILY
     Route: 048
  16. GARLIC [Concomitant]
     Indication: ROUTINE HEALTH MAINTENANCE
     Dosage: 1000 MG
     Route: 048
  17. DULCOSATE SODIUM [Concomitant]
     Indication: FAECES HARD
     Route: 048
  18. FOLIC ACID [Concomitant]
     Indication: ROUTINE HEALTH MAINTENANCE
     Dosage: 400 MG
     Route: 048
  19. ASCORBIC ACID [Concomitant]
     Indication: ROUTINE HEALTH MAINTENANCE
     Dosage: 500 MG
     Route: 048
  20. LISINOPRIL [Concomitant]
     Indication: HYPERTENSION
     Dosage: 20 MG
     Route: 048
  21. PRADAXA [Suspect]
     Indication: ANTICOAGULANT THERAPY
     Dosage: 300 MG
     Route: 048
     Dates: start: 20101224
  22. VITAMIN D [Concomitant]
     Indication: ROUTINE HEALTH MAINTENANCE
     Dosage: 1 DAILY
     Route: 048

REACTIONS (2)
  - HEADACHE [None]
  - DIZZINESS [None]
